FAERS Safety Report 8081207-1 (Version None)
Quarter: 2012Q1

REPORT INFORMATION
  Report Type: 
  Country: None (occurrence: None)
  Receive Date: 20120130
  Receipt Date: 20120120
  Transmission Date: 20120608
  Serious: Yes (Hospitalization)
  Sender: FDA-Public Use
  Company Number: US-BAYER-2012-008720

PATIENT
  Age: 28 Year
  Sex: Female
  Weight: 79.7 kg

DRUGS (1)
  1. YAZ [Suspect]

REACTIONS (4)
  - MYOCARDIAL INFARCTION [None]
  - NAUSEA [None]
  - HYPOAESTHESIA [None]
  - CHEST PAIN [None]
